FAERS Safety Report 16131863 (Version 1)
Quarter: 2019Q1

REPORT INFORMATION
  Report Type: Spontaneous
  Country: US (occurrence: US)
  Receive Date: 20190225
  Receipt Date: 20190225
  Transmission Date: 20190418
  Serious: Yes (Life-Threatening, Other)
  Sender: FDA-Public Use
  Company Number: None

PATIENT
  Age: 39 Year
  Sex: Male
  Weight: 146.06 kg

DRUGS (8)
  1. DEPLIN [Concomitant]
     Active Substance: LEVOMEFOLATE CALCIUM
  2. LATUDE [Concomitant]
  3. LAMOTRIGINE. [Suspect]
     Active Substance: LAMOTRIGINE
     Indication: BIPOLAR DISORDER
     Route: 048
     Dates: start: 201811, end: 201902
  4. LAMOTRIGINE. [Concomitant]
     Active Substance: LAMOTRIGINE
  5. SUBVENITE [Suspect]
     Active Substance: LAMOTRIGINE
     Indication: BIPOLAR I DISORDER
     Dates: start: 20190206, end: 20190215
  6. VAGARIN [Concomitant]
  7. YVANSE [Concomitant]
  8. FETZINE [Concomitant]

REACTIONS (6)
  - Suicidal ideation [None]
  - Insurance issue [None]
  - Product substitution issue [None]
  - Therapy non-responder [None]
  - Depression [None]
  - Self-injurious ideation [None]

NARRATIVE: CASE EVENT DATE: 20190215
